FAERS Safety Report 24239166 (Version 1)
Quarter: 2024Q3

REPORT INFORMATION
  Report Type: Spontaneous
  Country: US (occurrence: US)
  Receive Date: 20240822
  Receipt Date: 20240822
  Transmission Date: 20241016
  Serious: Yes (Other)
  Sender: ELITE
  Company Number: US-ELITEPHARMA-2024ELLIT00208

PATIENT
  Age: 61 Year
  Sex: Male

DRUGS (1)
  1. METHOTREXATE [Suspect]
     Active Substance: METHOTREXATE
     Indication: Central nervous system lymphoma
     Dosage: 8 ROUNDS
     Route: 065

REACTIONS (1)
  - Cutaneous lymphoma [Recovered/Resolved]
